FAERS Safety Report 5360792-4 (Version None)
Quarter: 2007Q2

REPORT INFORMATION
  Report Type: 
  Country: None (occurrence: None)
  Receive Date: 20070618
  Receipt Date: 20070605
  Transmission Date: 20071010
  Serious: Yes (Congenital Anomaly)
  Sender: FDA-Public Use
  Company Number: HR-ASTRAZENECA-2007SE03232

PATIENT
  Age: 10 Week

DRUGS (6)
  1. NEXIUM [Suspect]
     Indication: GASTROOESOPHAGEAL REFLUX DISEASE
     Route: 064
     Dates: start: 20061001
  2. NEXIUM [Suspect]
     Indication: GASTRITIS
     Route: 064
     Dates: start: 20061001
  3. NEXIUM [Concomitant]
     Route: 064
     Dates: start: 20060905, end: 20060911
  4. NEXIUM [Concomitant]
     Indication: VOMITING
     Route: 064
     Dates: start: 20060905, end: 20060911
  5. TORECAN [Concomitant]
     Indication: GASTROOESOPHAGEAL REFLUX DISEASE
     Route: 064
     Dates: start: 20060905, end: 20060911
  6. TORECAN [Concomitant]
     Indication: VOMITING
     Route: 064
     Dates: start: 20060905, end: 20060911

REACTIONS (1)
  - HYPOTONIA NEONATAL [None]
